FAERS Safety Report 24880305 (Version 1)
Quarter: 2025Q1

REPORT INFORMATION
  Report Type: Spontaneous
  Country: FR (occurrence: FR)
  Receive Date: 20250123
  Receipt Date: 20250123
  Transmission Date: 20250409
  Serious: Yes (Death)
  Sender: SAMSUNG BIOEPIS
  Company Number: FR-SAMSUNG BIOEPIS-SB-2025-02736

PATIENT
  Sex: Female

DRUGS (3)
  1. ECULIZUMAB [Suspect]
     Active Substance: ECULIZUMAB
     Indication: Transplant rejection
  2. ECULIZUMAB [Suspect]
     Active Substance: ECULIZUMAB
  3. ECULIZUMAB [Suspect]
     Active Substance: ECULIZUMAB

REACTIONS (5)
  - Respiratory distress [Fatal]
  - Hypercapnic coma [Fatal]
  - Multiple organ dysfunction syndrome [Fatal]
  - Drug effective for unapproved indication [Unknown]
  - Off label use [Unknown]
